FAERS Safety Report 25160208 (Version 1)
Quarter: 2025Q2

REPORT INFORMATION
  Report Type: Spontaneous
  Country: US (occurrence: None)
  Receive Date: 20250403
  Receipt Date: 20250403
  Transmission Date: 20250716
  Serious: Yes (Hospitalization)
  Sender: FDA-CTU
  Company Number: None

PATIENT
  Sex: Female

DRUGS (11)
  1. POMALYST [Suspect]
     Active Substance: POMALIDOMIDE
     Indication: Plasma cell myeloma in remission
     Dates: start: 20241127
  2. ACETAMINOPHN [Concomitant]
  3. ACYCLOVIR [Concomitant]
     Active Substance: ACYCLOVIR
  4. ASPIRIN [Concomitant]
     Active Substance: ASPIRIN
  5. BACLOFEN [Concomitant]
     Active Substance: BACLOFEN
  6. CALCIUM [Concomitant]
     Active Substance: CALCIUM
  7. CITALOPRAM [Concomitant]
     Active Substance: CITALOPRAM
  8. CITRACAL+D3 [Concomitant]
  9. DEXAMETHASONE [Concomitant]
     Active Substance: DEXAMETHASONE
  10. DULOXETINE [Concomitant]
     Active Substance: DULOXETINE
  11. FUROSEMIDE [Concomitant]
     Active Substance: FUROSEMIDE

REACTIONS (2)
  - Adverse drug reaction [None]
  - Herpes zoster [None]
